FAERS Safety Report 12912375 (Version 4)
Quarter: 2016Q4

REPORT INFORMATION
  Report Type: Spontaneous
  Country: US (occurrence: US)
  Receive Date: 20161104
  Receipt Date: 20161201
  Transmission Date: 20170207
  Serious: Yes (Other)
  Sender: FDA-Public Use
  Company Number: US-OMEROS CORPORATION-2016OME00036

PATIENT
  Age: 65 Year
  Sex: Female
  Weight: 65.76 kg

DRUGS (22)
  1. OMIDRIA [Suspect]
     Active Substance: KETOROLAC\PHENYLEPHRINE
     Indication: CATARACT OPERATION
     Dosage: UNK UNK, ONCE
     Dates: start: 20161017, end: 20161017
  2. CALCIUM [Concomitant]
     Active Substance: CALCIUM
  3. BETADINE [Concomitant]
     Active Substance: POVIDONE-IODINE
     Dosage: UNK
     Dates: start: 20161017, end: 20161017
  4. LIDOCAINE PRESERVATIVE FREE [Concomitant]
     Dosage: UNK
     Dates: start: 20161017, end: 20161017
  5. PREDNISOLONE ACETATE. [Concomitant]
     Active Substance: PREDNISOLONE ACETATE
     Dosage: 1 DROP, 4X/DAY
     Dates: start: 20161017, end: 20161023
  6. OMEPRAZOLE. [Concomitant]
     Active Substance: OMEPRAZOLE
  7. MIOSTAT [Concomitant]
     Active Substance: CARBACHOL
     Dosage: UNK
     Dates: start: 20161017, end: 20161017
  8. ACETAZOLAMIDE. [Concomitant]
     Active Substance: ACETAZOLAMIDE
     Dosage: UNK
     Dates: start: 20161017, end: 20161017
  9. PREDNISOLONE ACETATE. [Concomitant]
     Active Substance: PREDNISOLONE ACETATE
     Dosage: 1 DROP, 2X/DAY UNTIL GONE
     Dates: start: 20161023
  10. PROZAC [Concomitant]
     Active Substance: FLUOXETINE HYDROCHLORIDE
  11. KETOROLAC [Concomitant]
     Active Substance: KETOROLAC\KETOROLAC TROMETHAMINE
     Dosage: UNK
     Dates: start: 20161017, end: 20161017
  12. ANCEF [Concomitant]
     Active Substance: CEFAZOLIN SODIUM
     Dosage: 1 G, ONCE
     Route: 042
     Dates: start: 20161017, end: 20161017
  13. AMLODIPINE BESYLATE AND BENAZEPRIL HYDROCHLORIDE [Concomitant]
     Active Substance: AMLODIPINE BESYLATE\BENAZEPRIL HYDROCHLORIDE
  14. PHENYLEPHRINE [Concomitant]
     Active Substance: PHENYLEPHRINE\PHENYLEPHRINE HYDROCHLORIDE
     Dosage: UNK
     Dates: start: 20161017, end: 20161017
  15. CIPRO [Concomitant]
     Active Substance: CIPROFLOXACIN HYDROCHLORIDE
     Dosage: 1 DROP, 2X/DAY UNTIL GONE
     Dates: start: 20161023
  16. CENTRUM SILVER [Concomitant]
     Active Substance: MINERALS\VITAMINS
  17. VITAMIN D [Concomitant]
     Active Substance: CHOLECALCIFEROL
  18. CYCLOPENTOLATE. [Concomitant]
     Active Substance: CYCLOPENTOLATE
     Dosage: UNK
     Dates: start: 20161017, end: 20161017
  19. TETRACAINE. [Concomitant]
     Active Substance: TETRACAINE
     Dosage: UNK
     Dates: start: 20161017, end: 20161017
  20. DUOVISC [Concomitant]
     Active Substance: CHONDROITIN SULFATE A\HYALURONATE SODIUM
  21. BSS (ALCON) [Concomitant]
     Dosage: UNK
     Dates: start: 20161017, end: 20161017
  22. CIPRO [Concomitant]
     Active Substance: CIPROFLOXACIN HYDROCHLORIDE
     Dosage: 1 DROP, 4X/DAY
     Dates: start: 20161017, end: 20161023

REACTIONS (3)
  - Swelling [Recovering/Resolving]
  - Toxic anterior segment syndrome [Recovering/Resolving]
  - Visual acuity reduced [Recovering/Resolving]

NARRATIVE: CASE EVENT DATE: 20161018
